FAERS Safety Report 19480859 (Version 2)
Quarter: 2021Q3

REPORT INFORMATION
  Report Type: Spontaneous
  Country: US (occurrence: US)
  Receive Date: 20210701
  Receipt Date: 20210809
  Transmission Date: 20211014
  Serious: No
  Sender: FDA-Public Use
  Company Number: US-TEVA-2021-US-1924704

PATIENT
  Age: 87 Year
  Sex: Male

DRUGS (2)
  1. CLONIDINE PATCH [Suspect]
     Active Substance: CLONIDINE
     Route: 065
  2. CLONIDINE TEVA [Suspect]
     Active Substance: CLONIDINE
     Indication: ORTHOSTATIC HYPOTENSION
     Dosage: .2 MG WITH BREAKFAST AND .1 MG AT NIGHT
     Route: 065

REACTIONS (5)
  - Blood pressure orthostatic abnormal [Unknown]
  - Blood potassium increased [Unknown]
  - Drug ineffective [Unknown]
  - Glycosylated haemoglobin increased [Unknown]
  - Off label use [Unknown]
